FAERS Safety Report 14202557 (Version 2)
Quarter: 2018Q3

REPORT INFORMATION
  Report Type: Spontaneous
  Country: US (occurrence: US)
  Receive Date: 20171117
  Receipt Date: 20180717
  Transmission Date: 20181010
  Serious: No
  Sender: FDA-Public Use
  Company Number: US-BAUSCH-BL-2017-022579

PATIENT
  Age: 72 Year
  Sex: Female
  Weight: 69.01 kg

DRUGS (8)
  1. FUROSEMIDE. [Concomitant]
     Active Substance: FUROSEMIDE
     Indication: FLUID IMBALANCE
     Dosage: STARTED ABOUT TWO YEARS AGO
     Route: 048
     Dates: start: 2015
  2. FLUTICASONE. [Concomitant]
     Active Substance: FLUTICASONE
     Indication: NASAL CONGESTION
     Dosage: STARTED ABOUT TWO YEARS AGO, TWO SQUIRTS IN EACH NOSTRIL AT BED TIME
     Dates: start: 2015
  3. FLUTICASONE. [Concomitant]
     Active Substance: FLUTICASONE
     Indication: SINUSITIS
  4. CENTRUM SILVER [Concomitant]
     Active Substance: MINERALS\VITAMINS
     Indication: HYPOVITAMINOSIS
     Dosage: STARTED ABOUT FIVE YEARS AGO
     Route: 048
     Dates: start: 2012
  5. XIFAXAN [Suspect]
     Active Substance: RIFAXIMIN
     Indication: AMMONIA INCREASED
     Dosage: ONE IN MORNING AND ONE IN EVENING
     Route: 048
     Dates: start: 201701
  6. LACTULOSE. [Concomitant]
     Active Substance: LACTULOSE
     Indication: AMMONIA INCREASED
     Dosage: STARTED COUPLE OF YEARS AGO,ONE TABLESPOON TWICE DAILY
     Route: 048
     Dates: start: 2015
  7. FAMOTIDINE. [Concomitant]
     Active Substance: FAMOTIDINE
     Indication: HYPERTENSION
     Dosage: STARTED ABOUT TWO YEARS AGO
     Route: 048
  8. SPIRONOLACTONE. [Concomitant]
     Active Substance: SPIRONOLACTONE
     Indication: HYPERTENSION
     Dosage: SINCE LAST TWO YEARS
     Route: 048
     Dates: start: 2015

REACTIONS (2)
  - Off label use [Not Recovered/Not Resolved]
  - Back injury [Not Recovered/Not Resolved]

NARRATIVE: CASE EVENT DATE: 201701
